FAERS Safety Report 15207676 (Version 1)
Quarter: 2018Q3

REPORT INFORMATION
  Report Type: Spontaneous
  Country: US (occurrence: US)
  Receive Date: 20180727
  Receipt Date: 20180727
  Transmission Date: 20181010
  Serious: No
  Sender: FDA-Public Use
  Company Number: US-ALLERGAN-1650813

PATIENT
  Sex: Male
  Weight: 70.3 kg

DRUGS (4)
  1. ANDRODERM [Suspect]
     Active Substance: TESTOSTERONE
     Dosage: 6 MG: THREE 2 MG PATCHES
     Route: 062
     Dates: start: 200901
  2. ANDRODERM [Suspect]
     Active Substance: TESTOSTERONE
     Indication: BLOOD TESTOSTERONE DECREASED
     Dosage: 8 MG; TWO 4 MG PATCHES
     Route: 062
     Dates: start: 1999
  3. ANDRODERM [Suspect]
     Active Substance: TESTOSTERONE
     Dosage: UNK
     Route: 062
  4. ANDRODERM [Suspect]
     Active Substance: TESTOSTERONE
     Dosage: UNK
     Route: 062

REACTIONS (7)
  - Erectile dysfunction [Not Recovered/Not Resolved]
  - Pruritus [Not Recovered/Not Resolved]
  - Blood testosterone decreased [Unknown]
  - Drug ineffective [Unknown]
  - Wrong technique in product usage process [Unknown]
  - Erythema [Not Recovered/Not Resolved]
  - Product quality issue [Unknown]
